FAERS Safety Report 4788189-6 (Version None)
Quarter: 2005Q4

REPORT INFORMATION
  Report Type: 
  Country: None (occurrence: None)
  Receive Date: 20051003
  Receipt Date: 20050615
  Transmission Date: 20060501
  Serious: Yes (Other)
  Sender: FDA-Public Use
  Company Number: 200506IM000235

PATIENT
  Age: 50 Year
  Sex: Male

DRUGS (9)
  1. ADVAFERON (A643_INTERFERON ALFACON-1) [Suspect]
     Indication: HEPATITIS C
     Dosage: SEE IMAGE
     Route: 058
     Dates: start: 20030114, end: 20030131
  2. ADVAFERON (A643_INTERFERON ALFACON-1) [Suspect]
     Indication: HEPATITIS C
     Dosage: SEE IMAGE
     Route: 058
     Dates: start: 20030203, end: 20030630
  3. ETIZOLAM [Concomitant]
  4. DIGOXIN [Concomitant]
  5. ASPIRIN [Concomitant]
  6. VALSARTAN [Concomitant]
  7. FUROSEMIDE [Concomitant]
  8. FAMOTIDINE [Concomitant]
  9. METOCLOPRAMIDE [Concomitant]

REACTIONS (2)
  - ABNORMAL BEHAVIOUR [None]
  - SPEECH DISORDER [None]
